FAERS Safety Report 7673459-4 (Version None)
Quarter: 2011Q3

REPORT INFORMATION
  Report Type: 
  Country: None (occurrence: None)
  Receive Date: 20110810
  Receipt Date: 20110805
  Transmission Date: 20111222
  Serious: No
  Sender: FDA-Public Use
  Company Number: US-PFIZER INC-2011182252

PATIENT

DRUGS (1)
  1. ADVIL LIQUI-GELS [Suspect]

REACTIONS (2)
  - HYPOAESTHESIA ORAL [None]
  - HYPERHIDROSIS [None]
